FAERS Safety Report 5787497-X (Version None)
Quarter: 2008Q2

REPORT INFORMATION
  Report Type: 
  Country: None (occurrence: None)
  Receive Date: 20080625
  Receipt Date: 20071019
  Transmission Date: 20081010
  Serious: No
  Sender: FDA-Public Use
  Company Number: US-ASTRAZENECA-2007UW24408

PATIENT
  Age: 80 Year
  Sex: Female
  Weight: 49.4 kg

DRUGS (4)
  1. PULMICORT RESPULES [Suspect]
     Route: 055
     Dates: end: 20070801
  2. GLUCOPHAGE [Concomitant]
  3. LEVOXYL [Concomitant]
  4. SIMVASTATIN [Concomitant]

REACTIONS (1)
  - PULMONARY CONGESTION [None]
